FAERS Safety Report 6023347-4 (Version None)
Quarter: 2008Q4

REPORT INFORMATION
  Report Type: 
  Country: None (occurrence: None)
  Receive Date: 20081226
  Receipt Date: 20081226
  Transmission Date: 20090506
  Serious: No
  Sender: FDA-Public Use
  Company Number: None

PATIENT
  Age: 59 Year
  Sex: Male
  Weight: 103.4 kg

DRUGS (1)
  1. PREGABALIN [Suspect]
     Indication: PAIN
     Dosage: 75 MG BID PO
     Route: 048
     Dates: start: 20081125, end: 20081127

REACTIONS (3)
  - DIARRHOEA [None]
  - MUSCULAR WEAKNESS [None]
  - MYALGIA [None]
